FAERS Safety Report 9030455 (Version 2)
Quarter: 2013Q2

REPORT INFORMATION
  Report Type: Report from Study
  Country: US (occurrence: US)
  Receive Date: 20130122
  Receipt Date: 20130403
  Transmission Date: 20140414
  Serious: Yes (Other)
  Sender: FDA-Public Use
  Company Number: US-US-EMD SERONO, INC.-7187936

PATIENT
  Age: 31 Year
  Sex: Male
  Weight: 66 kg

DRUGS (2)
  1. REBIF [Suspect]
     Indication: MULTIPLE SCLEROSIS
     Route: 058
     Dates: start: 20110903, end: 201201
  2. REBIF [Suspect]
     Route: 058
     Dates: start: 20130321

REACTIONS (2)
  - Type 2 diabetes mellitus [Recovering/Resolving]
  - Liver function test abnormal [Recovered/Resolved]
